FAERS Safety Report 4541167-4 (Version None)
Quarter: 2004Q4

REPORT INFORMATION
  Report Type: 
  Country: None (occurrence: None)
  Receive Date: 20041227
  Receipt Date: 20041214
  Transmission Date: 20050328
  Serious: Yes (Disabling)
  Sender: FDA-Public Use
  Company Number: GBWYE134322OCT04

PATIENT
  Age: 52 Year
  Sex: Female

DRUGS (6)
  1. PREMIQUE (CONJUGATED ESTROGENS/MEDROXYPROGESTERONE ACETATE, TABLET) [Suspect]
     Indication: MENOPAUSAL SYMPTOMS
     Dosage: 1 TABLET 1X PER 1 DAY
     Route: 048
     Dates: start: 20040906, end: 20041020
  2. CITALOPRAM [Concomitant]
  3. PROCYCLIDINE HYDROCHLORIDE 2MG TAB [Concomitant]
  4. VALPROATE SODIUM [Concomitant]
  5. ZUCLOPENTHIXOL (ZUCLOPENTHIXOL) [Concomitant]
  6. ACETAMINOPHEN [Concomitant]

REACTIONS (4)
  - ABNORMAL BEHAVIOUR [None]
  - AGGRESSION [None]
  - SELF INJURIOUS BEHAVIOUR [None]
  - SLEEP DISORDER [None]
